FAERS Safety Report 24062259 (Version 2)
Quarter: 2025Q1

REPORT INFORMATION
  Report Type: Report from Study
  Country: FR (occurrence: FR)
  Receive Date: 20240708
  Receipt Date: 20250212
  Transmission Date: 20250409
  Serious: No
  Sender: IPSEN BIOPHARMACEUTICALS, INC.
  Company Number: FR-IPSEN Group, Research and Development-2019-18877

PATIENT
  Age: 4 Year
  Sex: Male
  Weight: 10 kg

DRUGS (3)
  1. INCRELEX [Suspect]
     Active Substance: MECASERMIN
     Indication: Severe primary insulin like growth factor-1 deficiency
     Dosage: 0.04 MG/KG = 40 UG/KG
     Route: 058
     Dates: start: 20150312, end: 20150319
  2. INCRELEX [Suspect]
     Active Substance: MECASERMIN
     Indication: Acquired growth hormone resistance
     Dosage: 0.08 MG/KG= 80 UG/KG
     Route: 058
     Dates: start: 20150320, end: 20150327
  3. INCRELEX [Suspect]
     Active Substance: MECASERMIN
     Indication: Small for dates baby
     Dosage: 0.12 MG/KG = 120 UG/KG
     Route: 058
     Dates: start: 20150328

REACTIONS (2)
  - Dysmorphism [Not Recovered/Not Resolved]
  - Hypoglycaemia [Recovered/Resolved]

NARRATIVE: CASE EVENT DATE: 20150312
